FAERS Safety Report 6472024-4 (Version None)
Quarter: 2009Q4

REPORT INFORMATION
  Report Type: 
  Country: None (occurrence: None)
  Receive Date: 20091203
  Receipt Date: 20080506
  Transmission Date: 20100525
  Serious: Yes (Hospitalization)
  Sender: FDA-Public Use
  Company Number: US-ELI_LILLY_AND_COMPANY-US200804003410

PATIENT
  Sex: Male
  Weight: 88.435 kg

DRUGS (13)
  1. BYETTA [Suspect]
     Indication: DIABETES MELLITUS
     Dosage: 5 UG, 2/D
     Route: 058
     Dates: start: 20070402, end: 20070502
  2. BYETTA [Suspect]
     Dosage: 10 UG, 2/D
     Route: 058
     Dates: start: 20070502, end: 20071119
  3. METFORMIN HCL [Concomitant]
     Indication: DIABETES MELLITUS
     Dosage: 1000 MG, 2/D
     Route: 048
  4. PIOGLITAZONE [Concomitant]
     Indication: DIABETES MELLITUS
     Dosage: 30 MG, DAILY (1/D)
     Route: 048
  5. LISINOPRIL [Concomitant]
     Indication: CARDIAC FAILURE
     Dosage: 40 MG, DAILY (1/D)
     Route: 048
  6. METOPROLOL [Concomitant]
     Indication: CARDIAC FAILURE
     Dosage: 12.5 MG, 2/D
     Route: 048
  7. CARVEDILOL [Concomitant]
     Indication: CARDIAC FAILURE
     Dosage: 3.125 MG, 2/D
     Route: 048
  8. SPIRONOLACTONE [Concomitant]
     Indication: CARDIAC FAILURE
     Dosage: 25 MG, DAILY (1/D)
     Route: 048
  9. INSULIN DETEMIR [Concomitant]
     Dosage: UNK, UNKNOWN
     Route: 065
  10. CITALOPRAM HYDROBROMIDE [Concomitant]
     Dosage: 20 MG, DAILY (1/D)
     Route: 065
  11. QUININE [Concomitant]
     Dosage: 325 MG, AS NEEDED
     Route: 065
  12. VITAMIN B-12 [Concomitant]
     Dosage: UNK, MONTHLY (1/M)
     Route: 065
  13. ASPIRIN [Concomitant]
     Dosage: 325 MG, DAILY (1/D)
     Route: 048

REACTIONS (5)
  - ABDOMINAL PAIN UPPER [None]
  - CELLULITIS [None]
  - LIPASE INCREASED [None]
  - PYREXIA [None]
  - WEIGHT DECREASED [None]
